FAERS Safety Report 5096670-8 (Version None)
Quarter: 2006Q3

REPORT INFORMATION
  Report Type: 
  Country: None (occurrence: None)
  Receive Date: 20060831
  Receipt Date: 20060822
  Transmission Date: 20061208
  Serious: Yes (Death, Hospitalization)
  Sender: FDA-Public Use
  Company Number: PHBS2006KR12689

PATIENT
  Age: 39 Year
  Sex: Female

DRUGS (4)
  1. CYCLOSPORINE [Suspect]
     Indication: GRAFT VERSUS HOST DISEASE
  2. PREDNISOLONE TAB [Suspect]
     Indication: GRAFT VERSUS HOST DISEASE
  3. MYCOPHENOLATE MOFETIL [Suspect]
     Indication: GRAFT VERSUS HOST DISEASE
  4. IMMUNOGLOBULINS(IMMUNOGLOBULINS) [Suspect]
     Dosage: INTRAVENOUS
     Route: 042

REACTIONS (6)
  - ABDOMINAL PAIN [None]
  - CONJUNCTIVITIS [None]
  - DIARRHOEA [None]
  - DIFFUSE ALVEOLAR DAMAGE [None]
  - PNEUMONIA MEASLES [None]
  - RASH MACULO-PAPULAR [None]
